FAERS Safety Report 23662923 (Version 3)
Quarter: 2024Q2

REPORT INFORMATION
  Report Type: Spontaneous
  Country: IN (occurrence: IN)
  Receive Date: 20240322
  Receipt Date: 20240420
  Transmission Date: 20240716
  Serious: Yes (Hospitalization, Other)
  Sender: FDA-Public Use
  Company Number: IN-TORRENT-00003499

PATIENT
  Age: 56 Year
  Sex: Male

DRUGS (6)
  1. CLONAZEPAM [Suspect]
     Active Substance: CLONAZEPAM
     Indication: Parkinsonism
     Dosage: 0.25 MG (0-0-1)
     Route: 065
  2. RISPERIDONE [Suspect]
     Active Substance: RISPERIDONE
     Indication: Psychiatric symptom
     Dosage: (0-0-1)
     Route: 048
  3. VALPROATE SODIUM [Suspect]
     Active Substance: VALPROATE SODIUM
     Indication: Tremor
     Route: 048
  4. TRIHEXYPHENIDYL [Suspect]
     Active Substance: TRIHEXYPHENIDYL
     Indication: Tremor
     Dosage: (1-1-O)
     Route: 048
  5. LEVODOPA [Suspect]
     Active Substance: LEVODOPA
     Indication: Parkinsonism
     Dosage: 110 MG (1/2-1/2-1/2)
     Route: 065
  6. CHLORPROMAZINE [Suspect]
     Active Substance: CHLORPROMAZINE
     Indication: Psychiatric symptom
     Route: 048

REACTIONS (2)
  - Parkinsonism [Recovered/Resolved]
  - Therapy partial responder [Unknown]
